FAERS Safety Report 5350897-6 (Version None)
Quarter: 2007Q2

REPORT INFORMATION
  Report Type: 
  Country: None (occurrence: None)
  Receive Date: 20070606
  Receipt Date: 20070606
  Transmission Date: 20071010
  Serious: Yes (Other)
  Sender: FDA-Public Use
  Company Number: None

PATIENT
  Sex: Female

DRUGS (3)
  1. LEVEMIR [Suspect]
     Indication: DIABETES MELLITUS
     Dosage: 80 UNITS (MAX) DAILY SC INJ
     Route: 058
     Dates: start: 20060701, end: 20061201
  2. LANTUS [Suspect]
     Dosage: 80 UNITS (MAX) DAILY SC INJ
     Route: 058
  3. PROGRAF [Concomitant]

REACTIONS (10)
  - ABDOMINAL DISTENSION [None]
  - BLOOD GLUCOSE INCREASED [None]
  - FATIGUE [None]
  - FLUID RETENTION [None]
  - FOOD CRAVING [None]
  - INSOMNIA [None]
  - LETHARGY [None]
  - MALAISE [None]
  - PAIN [None]
  - WEIGHT INCREASED [None]
